FAERS Safety Report 16402000 (Version 1)
Quarter: 2019Q2

REPORT INFORMATION
  Report Type: Spontaneous
  Country: CZ (occurrence: CZ)
  Receive Date: 20190607
  Receipt Date: 20190607
  Transmission Date: 20190711
  Serious: Yes (Hospitalization, Other)
  Sender: FDA-Public Use
  Company Number: CZ-AUROBINDO-AUR-APL-2019-033372

PATIENT

DRUGS (19)
  1. BLEOMYCIN [Suspect]
     Active Substance: BLEOMYCIN SULFATE
     Indication: HODGKIN^S DISEASE NODULAR SCLEROSIS STAGE III
     Dosage: UNK
     Route: 065
     Dates: start: 201207
  2. CYTARABINE. [Suspect]
     Active Substance: CYTARABINE
     Dosage: UNK; HIGH DOSE
     Route: 065
     Dates: start: 201309
  3. VINBLASTINE [Suspect]
     Active Substance: VINBLASTINE
     Dosage: UNK
     Route: 065
     Dates: start: 201207
  4. CARMUSTINE. [Suspect]
     Active Substance: CARMUSTINE
     Indication: HODGKIN^S DISEASE NODULAR SCLEROSIS STAGE III
     Dosage: UNK
     Route: 065
     Dates: start: 201309
  5. LOMUSTINE. [Suspect]
     Active Substance: LOMUSTINE
     Indication: HODGKIN^S DISEASE NODULAR SCLEROSIS STAGE III
     Dosage: UNK
     Route: 065
     Dates: start: 201312
  6. ETOPOSIDE. [Suspect]
     Active Substance: ETOPOSIDE
     Dosage: UNK
     Route: 065
     Dates: start: 201312
  7. CYTARABINE. [Suspect]
     Active Substance: CYTARABINE
     Indication: HODGKIN^S DISEASE NODULAR SCLEROSIS STAGE III
     Dosage: UNK;
     Route: 065
     Dates: start: 2012
  8. VINBLASTINE [Suspect]
     Active Substance: VINBLASTINE
     Indication: HODGKIN^S DISEASE NODULAR SCLEROSIS STAGE III
     Dosage: UNK
     Route: 065
     Dates: start: 201312
  9. CYTARABINE. [Suspect]
     Active Substance: CYTARABINE
     Dosage: UNK; HIGH DOSE
     Route: 065
     Dates: start: 201303
  10. CARMUSTINE. [Suspect]
     Active Substance: CARMUSTINE
     Dosage: HIGH DOSE
     Route: 065
     Dates: start: 201303
  11. DACARBAZINE. [Suspect]
     Active Substance: DACARBAZINE
     Indication: HODGKIN^S DISEASE NODULAR SCLEROSIS STAGE III
     Dosage: UNK
     Route: 065
     Dates: start: 201207
  12. DOXORUBICIN [Suspect]
     Active Substance: DOXORUBICIN
     Indication: HODGKIN^S DISEASE NODULAR SCLEROSIS STAGE III
     Dosage: UNK
     Route: 065
     Dates: start: 201207
  13. DEXAMETHASONE. [Suspect]
     Active Substance: DEXAMETHASONE
     Indication: HODGKIN^S DISEASE NODULAR SCLEROSIS STAGE III
     Dosage: UNK
     Route: 065
  14. CISPLATIN. [Suspect]
     Active Substance: CISPLATIN
     Indication: HODGKIN^S DISEASE NODULAR SCLEROSIS STAGE III
     Dosage: UNK
     Route: 065
  15. ETOPOSIDE. [Suspect]
     Active Substance: ETOPOSIDE
     Indication: HODGKIN^S DISEASE NODULAR SCLEROSIS STAGE III
     Dosage: HIGH DOSE
     Route: 065
  16. ETOPOSIDE. [Suspect]
     Active Substance: ETOPOSIDE
     Dosage: UNK
     Route: 065
     Dates: start: 201309
  17. MELPHALAN. [Suspect]
     Active Substance: MELPHALAN
     Indication: HODGKIN^S DISEASE NODULAR SCLEROSIS STAGE III
     Dosage: UNK
     Route: 065
     Dates: start: 201309
  18. MELPHALAN. [Suspect]
     Active Substance: MELPHALAN
     Dosage: HIGH DOSE
     Route: 065
     Dates: start: 201303
  19. ADCETRIS [Suspect]
     Active Substance: BRENTUXIMAB VEDOTIN
     Indication: HODGKIN^S DISEASE NODULAR SCLEROSIS STAGE III
     Dosage: UNK
     Route: 065

REACTIONS (3)
  - Therapeutic response decreased [Recovered/Resolved with Sequelae]
  - Hodgkin^s disease nodular sclerosis stage III [Recovered/Resolved with Sequelae]
  - Disease progression [Recovered/Resolved with Sequelae]
